FAERS Safety Report 7962746-8 (Version None)
Quarter: 2011Q4

REPORT INFORMATION
  Report Type: 
  Country: None (occurrence: None)
  Receive Date: 20111207
  Receipt Date: 20111124
  Transmission Date: 20120403
  Serious: Yes (Death)
  Sender: FDA-Public Use
  Company Number: DE-MYLANLABS-2011S1024292

PATIENT
  Age: 58 Year
  Sex: Male

DRUGS (1)
  1. AZATHIOPRINE [Suspect]
     Indication: CROHN'S DISEASE
     Dosage: 1-0-1
     Route: 048

REACTIONS (3)
  - HYPOGLYCAEMIC COMA [None]
  - RENAL FAILURE ACUTE [None]
  - SEPTIC SHOCK [None]
